FAERS Safety Report 23112568 (Version 1)
Quarter: 2023Q4

REPORT INFORMATION
  Report Type: Spontaneous
  Country: US (occurrence: US)
  Receive Date: 20231027
  Receipt Date: 20231027
  Transmission Date: 20240110
  Serious: Yes (Life-Threatening, Hospitalization)
  Sender: FDA-Public Use
  Company Number: US-drreddys-LIT/USA/23/0180549

PATIENT
  Age: 64 Year
  Sex: Male

DRUGS (1)
  1. DOXYCYCLINE [Suspect]
     Active Substance: DOXYCYCLINE
     Indication: Pneumothorax

REACTIONS (2)
  - Therapy non-responder [Unknown]
  - Product use in unapproved indication [Unknown]
